FAERS Safety Report 13965843 (Version 4)
Quarter: 2017Q3

REPORT INFORMATION
  Report Type: Spontaneous
  Country: JP (occurrence: JP)
  Receive Date: 20170913
  Receipt Date: 20170929
  Transmission Date: 20171128
  Serious: Yes (Life-Threatening, Other)
  Sender: FDA-Public Use
  Company Number: JP-PFIZER INC-2017380296

PATIENT
  Age: 10 Year
  Sex: Male
  Weight: 25.5 kg

DRUGS (9)
  1. OLOPATADINE. [Concomitant]
     Active Substance: OLOPATADINE
     Dosage: UNK
  2. MEYLON [Concomitant]
     Active Substance: SODIUM BICARBONATE
     Dosage: 20 ML, 5X/DAY
     Route: 042
     Dates: start: 20170830
  3. METHOTREXATE. [Suspect]
     Active Substance: METHOTREXATE
     Indication: OSTEOSARCOMA
     Dosage: 11.1 G, SINGLE
     Route: 041
     Dates: start: 20170830, end: 20170830
  4. DIAMOX /00016901/ [Concomitant]
     Active Substance: ACETAZOLAMIDE
     Dosage: 250 MG, 4X/DAY
     Dates: start: 20170830
  5. GRANISETRON [Concomitant]
     Active Substance: GRANISETRON
     Dosage: UNK
  6. DEXART [Concomitant]
     Active Substance: DEXAMETHASONE SODIUM PHOSPHATE
     Dosage: UNK
  7. LEUCOVORIN /00566701/ [Concomitant]
     Active Substance: LEUCOVORIN
     Dosage: 15 MG, 4X/DAY
     Dates: start: 20170831
  8. STRONGER NEO-MINOPHAGEN [Concomitant]
     Dosage: UNK
     Route: 058
     Dates: start: 20170901
  9. SOLDEM 1 [Concomitant]
     Active Substance: DEXTROSE\SODIUM CHLORIDE\SODIUM LACTATE
     Dosage: UNK

REACTIONS (8)
  - Deep vein thrombosis [Unknown]
  - Nausea [Unknown]
  - Vomiting [Unknown]
  - Abdominal pain [Unknown]
  - Thrombosis [Unknown]
  - Blood bilirubin increased [Unknown]
  - Altered state of consciousness [Unknown]
  - Hepatic function abnormal [Recovered/Resolved]

NARRATIVE: CASE EVENT DATE: 20170831
